FAERS Safety Report 6340262-7 (Version None)
Quarter: 2009Q3

REPORT INFORMATION
  Report Type: 
  Country: None (occurrence: None)
  Receive Date: 20090902
  Receipt Date: 20090817
  Transmission Date: 20100115
  Serious: Yes (Other)
  Sender: FDA-Public Use
  Company Number: PHHY2009IT34672

PATIENT
  Age: 73 Year
  Sex: Female

DRUGS (7)
  1. VISUDYNE [Suspect]
     Indication: MACULAR DEGENERATION
     Dosage: 2 MG/M^2 ONCE IV
     Route: 042
  2. TRIAMCINOLONE ACETONIDE [Suspect]
     Indication: MACULAR DEGENERATION
     Dosage: 25 MG DAILTY EY
  3. POVIDONE IODINE [Concomitant]
  4. POLYMYXIN-B-SULFATE [Concomitant]
  5. NEOMYCIN SULFATE [Concomitant]
  6. TIMOLOL [Concomitant]
  7. FLUORESCEIN [Concomitant]

REACTIONS (1)
  - OCULAR HYPERTENSION [None]
